FAERS Safety Report 4849241-X (Version None)
Quarter: 2005Q4

REPORT INFORMATION
  Report Type: 
  Country: None (occurrence: None)
  Receive Date: 20051209
  Receipt Date: 20051125
  Transmission Date: 20060501
  Serious: Yes (Hospitalization)
  Sender: FDA-Public Use
  Company Number: 2005AP06189

PATIENT
  Sex: Female

DRUGS (6)
  1. ZOLADEX [Suspect]
     Indication: BREAST CANCER
     Route: 058
  2. ENDOXAN [Suspect]
  3. MUCOSTA [Concomitant]
     Route: 048
  4. MERISLON [Concomitant]
     Route: 048
  5. RIZE [Concomitant]
     Route: 048
  6. NORVASC [Concomitant]
     Route: 048

REACTIONS (2)
  - ANAEMIA [None]
  - CYSTITIS HAEMORRHAGIC [None]
